FAERS Safety Report 5188598-X (Version None)
Quarter: 2006Q4

REPORT INFORMATION
  Report Type: 
  Country: None (occurrence: None)
  Receive Date: 20061221
  Receipt Date: 20061213
  Transmission Date: 20070319
  Serious: Yes (Hospitalization, Other)
  Sender: FDA-Public Use
  Company Number: JP-ELI_LILLY_AND_COMPANY-JP200612003489

PATIENT
  Age: 44 Year
  Sex: Male

DRUGS (1)
  1. GEMZAR [Suspect]
     Indication: PANCREATIC CARCINOMA STAGE IV
     Dosage: 800 MG, OTHER
     Route: 042
     Dates: start: 20060627

REACTIONS (3)
  - EMPYEMA [None]
  - SPLENIC ABSCESS [None]
  - WHITE BLOOD CELL COUNT DECREASED [None]
